FAERS Safety Report 9103809 (Version 3)
Quarter: 2013Q2

REPORT INFORMATION
  Report Type: Spontaneous
  Country: IT (occurrence: IT)
  Receive Date: 20130219
  Receipt Date: 20130405
  Transmission Date: 20140414
  Serious: Yes (Other)
  Sender: FDA-Public Use
  Company Number: IT-PFIZER INC-2013062318

PATIENT
  Age: 75 Year
  Sex: Female

DRUGS (4)
  1. ZOLOFT [Suspect]
     Indication: DEPRESSION
     Dosage: 100 MG, 1X/DAY
     Route: 048
     Dates: start: 20120209, end: 20130209
  2. NIFEDICOR [Concomitant]
     Dosage: UNK
  3. CARDIOASPIRIN [Concomitant]
     Dosage: 100 MG, UNK
  4. COVERSYL [Concomitant]
     Dosage: UNK

REACTIONS (2)
  - Confusional state [Recovering/Resolving]
  - Disorientation [Recovering/Resolving]
